FAERS Safety Report 19248306 (Version 1)
Quarter: 2021Q2

REPORT INFORMATION
  Report Type: Spontaneous
  Country: US (occurrence: US)
  Receive Date: 20210512
  Receipt Date: 20210512
  Transmission Date: 20210717
  Serious: Yes (Hospitalization)
  Sender: FDA-Public Use
  Company Number: US-MYLANLABS-2021M1027704

PATIENT
  Age: 88 Year
  Sex: Female

DRUGS (1)
  1. CLOBETASOL [Suspect]
     Active Substance: CLOBETASOL
     Indication: DERMATITIS
     Dosage: FOR OVER A YEAR
     Route: 061

REACTIONS (4)
  - Application site atrophy [Unknown]
  - Secondary adrenocortical insufficiency [Recovered/Resolved]
  - Skin atrophy [Unknown]
  - Blood pressure orthostatic abnormal [Unknown]
